FAERS Safety Report 20834873 (Version 2)
Quarter: 2022Q2

REPORT INFORMATION
  Report Type: Report from Study
  Country: CA (occurrence: CA)
  Receive Date: 20220516
  Receipt Date: 20220530
  Transmission Date: 20220720
  Serious: Yes (Death, Other)
  Sender: FDA-Public Use
  Company Number: CA-NOVARTISPH-NVSC2021CA217186

PATIENT
  Age: 48 Year
  Sex: Female
  Weight: 45.2 kg

DRUGS (6)
  1. ALPELISIB [Suspect]
     Active Substance: ALPELISIB
     Indication: Breast cancer
     Dosage: 300 MG
     Route: 065
  2. ALPELISIB [Suspect]
     Active Substance: ALPELISIB
     Dosage: 150 MG
     Route: 048
     Dates: start: 20210422, end: 20220111
  3. ALPELISIB [Suspect]
     Active Substance: ALPELISIB
     Dosage: QOD
     Route: 065
     Dates: start: 20210527
  4. ALPELISIB [Suspect]
     Active Substance: ALPELISIB
     Dosage: QD
     Route: 065
  5. ALPELISIB [Suspect]
     Active Substance: ALPELISIB
     Dosage: UNK
     Route: 065
     Dates: end: 20220128
  6. ABEMACICLIB [Suspect]
     Active Substance: ABEMACICLIB
     Indication: Product used for unknown indication
     Dosage: UNK
     Route: 065

REACTIONS (3)
  - Malignant neoplasm progression [Fatal]
  - Diabetes mellitus [Not Recovered/Not Resolved]
  - Rash [Recovered/Resolved]

NARRATIVE: CASE EVENT DATE: 20210422
